FAERS Safety Report 21749763 (Version 4)
Quarter: 2023Q1

REPORT INFORMATION
  Report Type: Report from Study
  Country: US (occurrence: US)
  Receive Date: 20221219
  Receipt Date: 20230208
  Transmission Date: 20230417
  Serious: Yes (Other)
  Sender: FDA-Public Use
  Company Number: US-ABBVIE-4242041

PATIENT
  Age: 64 Year
  Sex: Female
  Weight: 97 kg

DRUGS (8)
  1. HUMIRA [Suspect]
     Active Substance: ADALIMUMAB
     Indication: Hidradenitis
     Dosage: CITRATE FREE
     Route: 058
     Dates: start: 2021
  2. HUMIRA [Suspect]
     Active Substance: ADALIMUMAB
     Dosage: CITRATE FREE
     Route: 058
  3. LOSARTAN POTASSIUM [Concomitant]
     Active Substance: LOSARTAN POTASSIUM
     Indication: Hypertension
  4. OMEPRAZOLE [Concomitant]
     Active Substance: OMEPRAZOLE
     Indication: Gastrooesophageal reflux prophylaxis
  5. MONTELUKAST [Concomitant]
     Active Substance: MONTELUKAST SODIUM
     Indication: Allergy prophylaxis
  6. TYLENOL EXTRA STRENGTH [Concomitant]
     Active Substance: ACETAMINOPHEN
     Indication: Bursitis
  7. ROSUVASTATIN [Concomitant]
     Active Substance: ROSUVASTATIN
     Indication: Blood cholesterol decreased
  8. Covid-19 vaccine [Concomitant]
     Indication: COVID-19 immunisation
     Dosage: MOST RECENT DOSE/1 IN ONCE
     Route: 030
     Dates: start: 20220524, end: 20220524

REACTIONS (12)
  - Meniscus injury [Recovered/Resolved]
  - Arthritis [Recovered/Resolved]
  - COVID-19 [Recovered/Resolved]
  - Allergic cough [Recovered/Resolved]
  - Meniscus injury [Recovered/Resolved]
  - Drainage [Recovered/Resolved]
  - Asthma [Unknown]
  - Seasonal allergy [Unknown]
  - Dust allergy [Unknown]
  - Mycotic allergy [Unknown]
  - Bronchitis [Unknown]
  - Sneezing [Unknown]

NARRATIVE: CASE EVENT DATE: 20221212
